FAERS Safety Report 8623342 (Version 5)
Quarter: 2013Q2

REPORT INFORMATION
  Report Type: Spontaneous
  Country: JP (occurrence: JP)
  Receive Date: 20120620
  Receipt Date: 20130603
  Transmission Date: 20140414
  Serious: Yes (Life-Threatening)
  Sender: FDA-Public Use
  Company Number: JP-JNJFOC-20120608132

PATIENT
  Age: 80 Year
  Sex: Male
  Weight: 50 kg

DRUGS (8)
  1. TRAMCET [Suspect]
     Indication: PAIN
     Dosage: 4 TABLETS PER DAY, TWICE DAILY
     Route: 048
     Dates: start: 20120523
  2. TRAMCET [Suspect]
     Indication: PAIN
     Dosage: 2 TABLETS PER DAY, TWICE DAILY
     Route: 048
     Dates: start: 20120509, end: 20120522
  3. NAUZELIN [Concomitant]
     Indication: PRODUCT USED FOR UNKNOWN INDICATION
     Dosage: 20 MG ONE PER DAY
     Route: 048
  4. VOLTAREN [Concomitant]
     Indication: PRODUCT USED FOR UNKNOWN INDICATION
     Dosage: 1 PER DAY
     Route: 054
  5. MUCOSTA [Concomitant]
     Indication: PRODUCT USED FOR UNKNOWN INDICATION
     Dosage: 100 MG 3 TABLETS DAILY
     Route: 048
  6. YODEL [Concomitant]
     Indication: PRODUCT USED FOR UNKNOWN INDICATION
     Dosage: 1 TABLET DAILY
     Route: 048
  7. GABAPENTIN [Concomitant]
     Indication: PRODUCT USED FOR UNKNOWN INDICATION
     Dosage: 1 TABLET PER DAY
     Route: 048
  8. RHUBARB [Concomitant]
     Indication: PRODUCT USED FOR UNKNOWN INDICATION
     Dosage: 1 PER DAY
     Route: 048

REACTIONS (2)
  - Ileus [Not Recovered/Not Resolved]
  - Blood pressure decreased [Unknown]
